FAERS Safety Report 5629651-3 (Version None)
Quarter: 2008Q1

REPORT INFORMATION
  Report Type: 
  Country: None (occurrence: None)
  Receive Date: 20080218
  Receipt Date: 20080207
  Transmission Date: 20080703
  Serious: Yes (Hospitalization, Disabling)
  Sender: FDA-Public Use
  Company Number: B0460916A

PATIENT
  Age: 39 Year
  Sex: Female
  Weight: 62 kg

DRUGS (2)
  1. SEROXAT [Suspect]
     Indication: DEPRESSION
     Route: 048
     Dates: start: 20050816
  2. PAROXETINE HCL [Suspect]
     Route: 065

REACTIONS (6)
  - ABNORMAL DREAMS [None]
  - DIZZINESS [None]
  - DRUG EXPOSURE DURING PREGNANCY [None]
  - DRUG WITHDRAWAL MAINTENANCE THERAPY [None]
  - DRUG WITHDRAWAL SYNDROME [None]
  - FLUSHING [None]
